FAERS Safety Report 14629202 (Version 3)
Quarter: 2018Q2

REPORT INFORMATION
  Report Type: Spontaneous
  Country: IT (occurrence: IT)
  Receive Date: 20180313
  Receipt Date: 20180424
  Transmission Date: 20180711
  Serious: Yes (Other)
  Sender: FDA-Public Use
  Company Number: IT-ACCORD-064379

PATIENT
  Age: 33 Year
  Sex: Male
  Weight: 100 kg

DRUGS (8)
  1. LANSOPRAZOLE. [Suspect]
     Active Substance: LANSOPRAZOLE
     Dosage: STRENGTH: 15 MG
     Route: 048
     Dates: start: 20171112, end: 20171112
  2. AKINETON [Suspect]
     Active Substance: BIPERIDEN HYDROCHLORIDE
     Dosage: STRENGTH: 4 MG
     Route: 048
     Dates: start: 20171112, end: 20171112
  3. HALDOL [Suspect]
     Active Substance: HALOPERIDOL
     Dosage: STRENGTH: 1 MG
     Route: 048
     Dates: start: 20171112, end: 20171112
  4. LORMETAZEPAM [Suspect]
     Active Substance: LORMETAZEPAM
     Dosage: STRENGTH: 2 MG
     Route: 048
     Dates: start: 20171112, end: 20171112
  5. QUETIAPINE ACCORD [Suspect]
     Active Substance: QUETIAPINE
     Dosage: STRENGTH: 200 MG
     Route: 048
     Dates: start: 20171112, end: 20171112
  6. ZUCLOPENTHIXOL [Suspect]
     Active Substance: ZUCLOPENTHIXOL
     Dosage: STRENGTH: 10 MG
     Route: 048
     Dates: start: 20171112, end: 20171112
  7. RISPERIDONE. [Suspect]
     Active Substance: RISPERIDONE
     Dosage: STRENGTH: 2 MG
     Route: 048
     Dates: start: 20171112, end: 20171112
  8. LORAZEPAM. [Suspect]
     Active Substance: LORAZEPAM
     Dosage: STRENGTH: 2.5 MG
     Route: 048
     Dates: start: 20171112, end: 20171112

REACTIONS (3)
  - Intentional product misuse [Unknown]
  - Intentional self-injury [Unknown]
  - Self-injurious ideation [Unknown]

NARRATIVE: CASE EVENT DATE: 20171112
